FAERS Safety Report 17963372 (Version 3)
Quarter: 2020Q3

REPORT INFORMATION
  Report Type: Spontaneous
  Country: GB (occurrence: GB)
  Receive Date: 20200630
  Receipt Date: 20200805
  Transmission Date: 20201103
  Serious: Yes (Hospitalization)
  Sender: FDA-Public Use
  Company Number: GB-TEVA-2020-GB-1792221

PATIENT
  Age: 50 Year
  Sex: Female
  Weight: 97.97 kg

DRUGS (7)
  1. OLANZAPINE. [Concomitant]
     Active Substance: OLANZAPINE
     Dosage: 5 MG
  2. NITROLINGUAL [Concomitant]
     Active Substance: NITROGLYCERIN
     Dosage: 6.3 G
  3. THIAMINE. [Concomitant]
     Active Substance: THIAMINE
     Dosage: 100 MG
  4. VALPROIC ACID. [Suspect]
     Active Substance: VALPROIC ACID
     Indication: AFFECTIVE DISORDER
     Dosage: 1500 MG
     Route: 048
     Dates: start: 201206
  5. BUDESONIDE. [Concomitant]
     Active Substance: BUDESONIDE
     Dosage: 200 MCG
  6. LEVOTHYROXINE. [Concomitant]
     Active Substance: LEVOTHYROXINE
     Dosage: 150 MCG
  7. SERTRALINE [Concomitant]
     Active Substance: SERTRALINE HYDROCHLORIDE
     Dosage: 200 MG

REACTIONS (5)
  - Hypothyroidism [Not Recovered/Not Resolved]
  - Dysphonia [Unknown]
  - Fibrin D dimer increased [Unknown]
  - Chest pain [Unknown]
  - Dyspnoea [Unknown]

NARRATIVE: CASE EVENT DATE: 201603
